FAERS Safety Report 25353710 (Version 3)
Quarter: 2025Q3

REPORT INFORMATION
  Report Type: Report from Study
  Country: US (occurrence: US)
  Receive Date: 20250523
  Receipt Date: 20250907
  Transmission Date: 20251021
  Serious: Yes (Hospitalization, Other)
  Sender: ABBVIE
  Company Number: US-ABBVIE-6292134

PATIENT
  Age: 56 Year
  Sex: Female

DRUGS (2)
  1. RINVOQ [Suspect]
     Active Substance: UPADACITINIB
     Indication: Rheumatoid arthritis
     Dosage: STRENGTH: 15MG?DISCONTINUED FOR 2 WEEKS
     Route: 048
     Dates: start: 20241128, end: 202507
  2. RINVOQ [Suspect]
     Active Substance: UPADACITINIB
     Indication: Rheumatoid arthritis
     Dosage: STRENGTH: 15MG
     Route: 048
     Dates: start: 20250809

REACTIONS (6)
  - Back pain [Recovering/Resolving]
  - Lumbar vertebral fracture [Not Recovered/Not Resolved]
  - Fall [Unknown]
  - Concussion [Unknown]
  - Spinal stenosis [Unknown]
  - Mobility decreased [Recovering/Resolving]

NARRATIVE: CASE EVENT DATE: 20250101
